FAERS Safety Report 17568729 (Version 3)
Quarter: 2020Q3

REPORT INFORMATION
  Report Type: Spontaneous
  Country: LT (occurrence: LT)
  Receive Date: 20200321
  Receipt Date: 20200701
  Transmission Date: 20201102
  Serious: Yes (Hospitalization)
  Sender: FDA-Public Use
  Company Number: LT-ACCORD-176037

PATIENT
  Age: 23 Year
  Sex: Male

DRUGS (5)
  1. QUETIAPINE. [Suspect]
     Active Substance: QUETIAPINE
     Indication: SLEEP DISORDER
     Route: 065
  2. ACICLOVIR [Concomitant]
     Active Substance: ACYCLOVIR
     Indication: MENINGOENCEPHALITIS HERPETIC
     Dosage: 3000 MG PER DAY
  3. ACICLOVIR [Suspect]
     Active Substance: ACYCLOVIR
     Indication: MENINGOENCEPHALITIS HERPETIC
     Dosage: 3000 MG PER DAY
  4. QUETIAPINE. [Suspect]
     Active Substance: QUETIAPINE
     Indication: SLEEP DISORDER
     Route: 065
  5. VALPROIC ACID. [Suspect]
     Active Substance: VALPROIC ACID
     Indication: PARTIAL SEIZURES
     Route: 065

REACTIONS (7)
  - Fear of death [Recovering/Resolving]
  - Ammonia increased [Recovered/Resolved]
  - Sleep disorder [Recovering/Resolving]
  - Drug ineffective [Unknown]
  - Anxiety [Recovering/Resolving]
  - Lymphopenia [Recovered/Resolved]
  - Condition aggravated [Recovered/Resolved]
